FAERS Safety Report 4975421-9 (Version None)
Quarter: 2006Q2

REPORT INFORMATION
  Report Type: 
  Country: None (occurrence: None)
  Receive Date: 20060418
  Receipt Date: 20060322
  Transmission Date: 20061013
  Serious: Yes (Hospitalization)
  Sender: FDA-Public Use
  Company Number: PHEH2006US03843

PATIENT
  Age: 72 Year
  Sex: Female
  Weight: 100.68 kg

DRUGS (4)
  1. CARDIZEM LA [Suspect]
     Indication: CARDIAC DISORDER
     Dosage: 240 MG, QD
     Route: 048
     Dates: start: 20050816
  2. LANOXIN [Concomitant]
     Indication: ATRIAL FIBRILLATION
     Dates: start: 19840301
  3. COUMADIN [Concomitant]
  4. DIOVAN [Suspect]
     Indication: HYPERTENSION
     Dosage: 80 MG, QD
     Route: 048
     Dates: start: 20050101, end: 20060412

REACTIONS (6)
  - CHEST PAIN [None]
  - DIZZINESS [None]
  - FATIGUE [None]
  - MYOCARDIAL INFARCTION [None]
  - NAUSEA [None]
  - STOMACH DISCOMFORT [None]
